FAERS Safety Report 24971675 (Version 1)
Quarter: 2025Q1

REPORT INFORMATION
  Report Type: Spontaneous
  Country: US (occurrence: US)
  Receive Date: 20250214
  Receipt Date: 20250214
  Transmission Date: 20250409
  Serious: No
  Sender: PFIZER
  Company Number: US-PFIZER INC-202500032641

PATIENT
  Age: 75 Year
  Sex: Female

DRUGS (2)
  1. IBRANCE [Suspect]
     Active Substance: PALBOCICLIB
     Indication: Bone cancer
     Route: 048
     Dates: start: 20250131
  2. ANASTROZOLE [Suspect]
     Active Substance: ANASTROZOLE

REACTIONS (3)
  - Hot flush [Unknown]
  - Hypertension [Unknown]
  - Off label use [Unknown]
